FAERS Safety Report 14916618 (Version 6)
Quarter: 2018Q3

REPORT INFORMATION
  Report Type: Spontaneous
  Country: PL (occurrence: PL)
  Receive Date: 20180519
  Receipt Date: 20180904
  Transmission Date: 20181010
  Serious: Yes (Hospitalization, Other)
  Sender: FDA-Public Use
  Company Number: PL-AUROBINDO-AUR-APL-2018-026529

PATIENT
  Age: 61 Year
  Sex: Male

DRUGS (30)
  1. ALLOPURINOL. [Suspect]
     Active Substance: ALLOPURINOL
     Indication: PRODUCT USED FOR UNKNOWN INDICATION
     Dosage: UNK
     Route: 065
  2. DICLOFENAC [Suspect]
     Active Substance: DICLOFENAC
     Dosage: DOSE DIFFICULT TO ESTIMATE ()
     Route: 048
  3. FUROSEMIDE. [Suspect]
     Active Substance: FUROSEMIDE
     Indication: PRODUCT USED FOR UNKNOWN INDICATION
     Dosage: UNK
     Route: 065
  4. IPRATROPIUM BROMIDE. [Suspect]
     Active Substance: IPRATROPIUM BROMIDE
     Indication: PRODUCT USED FOR UNKNOWN INDICATION
     Dosage: UNK
     Route: 065
  5. IPRATROPIUM BROMIDE. [Suspect]
     Active Substance: IPRATROPIUM BROMIDE
     Dosage: UNK ()
     Route: 065
  6. AMLODIPINE [Suspect]
     Active Substance: AMLODIPINE BESYLATE
     Indication: PRODUCT USED FOR UNKNOWN INDICATION
     Dosage: UNK
     Route: 065
  7. AMLODIPINE [Suspect]
     Active Substance: AMLODIPINE BESYLATE
     Dosage: UNK ()
     Route: 065
  8. DICLOFENAC [Suspect]
     Active Substance: DICLOFENAC
     Dosage: DOSE DIFFICULT TO ESTIMATE ()
     Route: 048
  9. AMLODIPINE [Suspect]
     Active Substance: AMLODIPINE BESYLATE
     Dosage: UNK ()
     Route: 065
  10. LEVOFLOXACIN. [Suspect]
     Active Substance: LEVOFLOXACIN
     Dosage: UNK ()
     Route: 065
  11. LEVOFLOXACIN. [Suspect]
     Active Substance: LEVOFLOXACIN
     Dosage: UNK ()
     Route: 065
  12. BISOPROLOL [Suspect]
     Active Substance: BISOPROLOL
     Indication: PRODUCT USED FOR UNKNOWN INDICATION
     Dosage: UNK
     Route: 065
  13. BUDESONIDE. [Suspect]
     Active Substance: BUDESONIDE
     Indication: PRODUCT USED FOR UNKNOWN INDICATION
     Dosage: UNK
     Route: 065
  14. FUROSEMIDE. [Suspect]
     Active Substance: FUROSEMIDE
     Dosage: UNK ()
     Route: 065
  15. BUDESONIDE. [Suspect]
     Active Substance: BUDESONIDE
     Dosage: UNK ()
     Route: 065
  16. DICLOFENAC [Suspect]
     Active Substance: DICLOFENAC
     Dosage: DOSE DIFFICULT TO ESTIMATE ()
     Route: 048
  17. FUROSEMIDE. [Suspect]
     Active Substance: FUROSEMIDE
     Dosage: UNK ()
     Route: 065
  18. IPRATROPIUM BROMIDE. [Suspect]
     Active Substance: IPRATROPIUM BROMIDE
     Dosage: UNK ()
     Route: 065
  19. AMLODIPINE [Suspect]
     Active Substance: AMLODIPINE BESYLATE
     Dosage: UNK ()
     Route: 065
  20. ALLOPURINOL. [Suspect]
     Active Substance: ALLOPURINOL
     Dosage: UNK ()
     Route: 065
  21. BUDESONIDE. [Suspect]
     Active Substance: BUDESONIDE
     Dosage: UNK ()
     Route: 065
  22. BUDESONIDE. [Suspect]
     Active Substance: BUDESONIDE
     Dosage: UNK ()
     Route: 065
  23. ALLOPURINOL. [Suspect]
     Active Substance: ALLOPURINOL
     Dosage: UNK ()
     Route: 065
  24. ALLOPURINOL. [Suspect]
     Active Substance: ALLOPURINOL
     Dosage: UNK ()
     Route: 065
  25. FUROSEMIDE. [Suspect]
     Active Substance: FUROSEMIDE
     Dosage: UNK ()
     Route: 065
  26. LEVOFLOXACIN. [Suspect]
     Active Substance: LEVOFLOXACIN
     Indication: PRODUCT USED FOR UNKNOWN INDICATION
     Dosage: UNK
     Route: 065
  27. LEVOFLOXACIN. [Suspect]
     Active Substance: LEVOFLOXACIN
     Dosage: UNK ()
     Route: 065
  28. DICLOFENAC [Suspect]
     Active Substance: DICLOFENAC
     Indication: GOUT
     Dosage: UNK
     Route: 065
  29. DICLOFENAC [Suspect]
     Active Substance: DICLOFENAC
     Dosage: DOSE DIFFICULT TO ESTIMATE ()
     Route: 048
  30. IPRATROPIUM BROMIDE. [Suspect]
     Active Substance: IPRATROPIUM BROMIDE
     Dosage: UNK ()
     Route: 065

REACTIONS (16)
  - Intentional overdose [Unknown]
  - Drug abuse [Unknown]
  - Occult blood positive [Recovering/Resolving]
  - Gastric disorder [Unknown]
  - Gout [Recovering/Resolving]
  - Disease recurrence [Unknown]
  - Blood pressure increased [Unknown]
  - Drug ineffective [Recovering/Resolving]
  - Gastrointestinal erosion [Unknown]
  - Oesophagitis [Unknown]
  - Duodenitis [Unknown]
  - Normocytic anaemia [Unknown]
  - Tubulointerstitial nephritis [Recovered/Resolved]
  - Bronchitis [Recovering/Resolving]
  - Intentional product misuse [Unknown]
  - Chest pain [Recovering/Resolving]
